FAERS Safety Report 20559472 (Version 2)
Quarter: 2022Q1

REPORT INFORMATION
  Report Type: Report from Study
  Country: FR (occurrence: FR)
  Receive Date: 20220307
  Receipt Date: 20220309
  Transmission Date: 20220423
  Serious: Yes (Hospitalization)
  Sender: FDA-Public Use
  Company Number: FR-SERVIER-S22002096

PATIENT

DRUGS (15)
  1. PEGASPARGASE [Suspect]
     Active Substance: PEGASPARGASE
     Indication: Acute lymphocytic leukaemia
     Dosage: 1950 IU, D12
     Route: 042
     Dates: start: 20200428
  2. DEXAMETHASONE [Suspect]
     Active Substance: DEXAMETHASONE
     Indication: Acute lymphocytic leukaemia
     Dosage: 4 MG, D8 TO D28
     Route: 048
     Dates: start: 20200424, end: 20200514
  3. VINCRISTINE [Suspect]
     Active Substance: VINCRISTINE
     Indication: Acute lymphocytic leukaemia
     Dosage: 1.2 MG, D8, D15, D22, D29
     Route: 042
     Dates: start: 20200424, end: 20200515
  4. DAUNORUBICIN [Suspect]
     Active Substance: DAUNORUBICIN
     Indication: Acute lymphocytic leukaemia
     Dosage: 24 MG, D8, D15, D22, D29
     Route: 042
     Dates: start: 20200424, end: 20200515
  5. TN UNSPECIFIED [Concomitant]
     Indication: Acute lymphocytic leukaemia
     Dosage: 12 MG, D13, D24
     Route: 037
     Dates: start: 20200429, end: 20200510
  6. AMBISOME [Concomitant]
     Active Substance: AMPHOTERICIN B
     Indication: Antifungal prophylaxis
     Dosage: 20 MG
     Route: 042
     Dates: start: 20200424, end: 20200526
  7. BACTRIM [Concomitant]
     Active Substance: SULFAMETHOXAZOLE\TRIMETHOPRIM
     Indication: Antifungal prophylaxis
     Dosage: 400 MG
     Route: 048
     Dates: start: 20200424
  8. Calcidose [Concomitant]
     Indication: Bone demineralisation
     Dosage: 500 MG
     Route: 048
     Dates: start: 20200424
  9. Calcidose [Concomitant]
     Indication: Prophylaxis
  10. TN UNSPECIFIED [Concomitant]
     Indication: Product used for unknown indication
     Dosage: UNK
     Route: 065
  11. TN UNSPECIFIED [Concomitant]
     Indication: Gastritis
     Dosage: 15 MG
     Route: 048
     Dates: start: 20200417
  12. TN UNSPECIFIED [Concomitant]
     Indication: Pyrexia
     Dosage: 1200 MG
     Route: 048
     Dates: start: 20200416
  13. TN UNSPECIFIED [Concomitant]
     Indication: Pain
     Dosage: 1200 MG
     Route: 042
     Dates: start: 20200416
  14. ONDANSETRON [Concomitant]
     Active Substance: ONDANSETRON
     Indication: Nausea
     Dosage: 8 MG
     Route: 048
     Dates: start: 20200417
  15. ONDANSETRON [Concomitant]
     Active Substance: ONDANSETRON
     Indication: Vomiting
     Dosage: 8 MG
     Route: 042
     Dates: start: 20200417

REACTIONS (2)
  - Oedema [Recovered/Resolved]
  - Hypoalbuminaemia [Recovered/Resolved]

NARRATIVE: CASE EVENT DATE: 20200518
